FAERS Safety Report 13054610 (Version 1)
Quarter: 2016Q4

REPORT INFORMATION
  Report Type: Spontaneous
  Country: US (occurrence: US)
  Receive Date: 20161222
  Receipt Date: 20161222
  Transmission Date: 20170207
  Serious: No
  Sender: FDA-Public Use
  Company Number: US-ASTRAZENECA-2016SF29736

PATIENT
  Age: 55 Year
  Sex: Female
  Weight: 49 kg

DRUGS (6)
  1. TUDORZA PRESSAIR [Suspect]
     Active Substance: ACLIDINIUM BROMIDE
     Dosage: 400 MCG, TWO PUFFS TWICE DAILY
     Route: 055
     Dates: start: 2015
  2. MS CONTIN [Concomitant]
     Active Substance: MORPHINE SULFATE
  3. PERCOCET [Concomitant]
     Active Substance: ACETAMINOPHEN\OXYCODONE HYDROCHLORIDE
     Dosage: FOUR TIMES A DAY, 5/325 MG
  4. NEURONTIN [Concomitant]
     Active Substance: GABAPENTIN
  5. NORTRIPTYLINE [Concomitant]
     Active Substance: NORTRIPTYLINE
  6. BACACLOPHN [Concomitant]

REACTIONS (4)
  - Emphysema [Unknown]
  - Circumstance or information capable of leading to medication error [Unknown]
  - Intentional product misuse [Not Recovered/Not Resolved]
  - Productive cough [Unknown]

NARRATIVE: CASE EVENT DATE: 2015
